FAERS Safety Report 19773000 (Version 1)
Quarter: 2021Q3

REPORT INFORMATION
  Report Type: Spontaneous
  Country: NL (occurrence: NL)
  Receive Date: 20210901
  Receipt Date: 20210901
  Transmission Date: 20211014
  Serious: Yes (Death)
  Sender: FDA-Public Use
  Company Number: NL-MYLANLABS-2021M1057637

PATIENT
  Age: 19 Year
  Sex: Male

DRUGS (2)
  1. ISOTRETINOINE [Suspect]
     Active Substance: ISOTRETINOIN
     Indication: ACNE
     Dosage: 1X PER DAG 30MG (BESTAANDE UIT 10MG EN 20MG CAPSULE)
     Dates: start: 20210203
  2. ISOTRETINOIN 10 MG SOFT CAPSULES [Suspect]
     Active Substance: ISOTRETINOIN
     Indication: ACNE
     Dosage: 1X PER DAG 30MG (BESTAANDE UIT 10MG EN 20MG CAPSULE)
     Route: 065
     Dates: start: 20210203

REACTIONS (1)
  - Completed suicide [Fatal]

NARRATIVE: CASE EVENT DATE: 20210319
